FAERS Safety Report 23569000 (Version 1)
Quarter: 2024Q1

REPORT INFORMATION
  Report Type: Report from Study
  Country: US (occurrence: US)
  Receive Date: 20240227
  Receipt Date: 20240227
  Transmission Date: 20240409
  Serious: No
  Sender: FDA-Public Use
  Company Number: US-ORG100014127-2023001036

PATIENT
  Age: 47 Year
  Sex: Female

DRUGS (6)
  1. METOPIRONE [Suspect]
     Active Substance: METYRAPONE
     Indication: Adrenal gland cancer
  2. METOPIRONE [Suspect]
     Active Substance: METYRAPONE
     Indication: Adrenal gland cancer
     Dosage: 4 TAB IN AM AND 3 TABS IN PM
     Dates: start: 20231120
  3. LYSODREN [Concomitant]
     Active Substance: MITOTANE
     Indication: Adrenal gland cancer
     Dosage: 01 TAB TWICE DAY FOR 7 DAYS
     Route: 048
     Dates: start: 20221214
  4. LYSODREN [Concomitant]
     Active Substance: MITOTANE
     Indication: Adrenal gland cancer
     Dosage: 02 TAB TWICE DAY FOR 7 DAYS
     Route: 048
  5. LYSODREN [Concomitant]
     Active Substance: MITOTANE
     Indication: Adrenal gland cancer
     Dosage: 03 TAB TWICE DAY FOR 7 DAYS
     Route: 048
  6. LYSODREN [Concomitant]
     Active Substance: MITOTANE
     Indication: Adrenal gland cancer
     Dosage: 06 TAB TWICE DAY FOR 7 DAYS
     Route: 048

REACTIONS (1)
  - Off label use [Unknown]
